FAERS Safety Report 8970198 (Version 1)
Quarter: 2012Q4

REPORT INFORMATION
  Report Type: 
  Country: US (occurrence: US)
  Receive Date: 20121218
  Receipt Date: 20121218
  Transmission Date: 20130627
  Serious: No
  Sender: FDA-Public Use
  Company Number: US-GLAXOSMITHKLINE-A0952599A

PATIENT
  Age: 70 Year
  Sex: Male

DRUGS (1)
  1. COMMIT [Suspect]
     Indication: EX-TOBACCO USER

REACTIONS (7)
  - Nicotine dependence [Not Recovered/Not Resolved]
  - Nervousness [Recovered/Resolved]
  - Irritability [Recovered/Resolved]
  - Drug administration error [Unknown]
  - Feeling abnormal [Recovered/Resolved]
  - Intentional drug misuse [Unknown]
  - Product quality issue [Unknown]
